FAERS Safety Report 23118035 (Version 3)
Quarter: 2023Q4

REPORT INFORMATION
  Report Type: Spontaneous
  Country: US (occurrence: US)
  Receive Date: 20231027
  Receipt Date: 20231128
  Transmission Date: 20240109
  Serious: No
  Sender: FDA-Public Use
  Company Number: US-PFIZER INC-202300347265

PATIENT
  Age: 10 Year
  Sex: Female

DRUGS (1)
  1. OXBRYTA [Suspect]
     Active Substance: VOXELOTOR
     Dosage: 1000 MG, 1X/DAY (500MG, 2 TABLETS ONCE DAILY, ORALLY)
     Route: 048
     Dates: end: 202310

REACTIONS (1)
  - Vomiting [Not Recovered/Not Resolved]
